FAERS Safety Report 16079499 (Version 3)
Quarter: 2019Q1

REPORT INFORMATION
  Report Type: Spontaneous
  Country: US (occurrence: US)
  Receive Date: 20190315
  Receipt Date: 20190325
  Transmission Date: 20190418
  Serious: Yes (Other)
  Sender: FDA-Public Use
  Company Number: US-JNJFOC-20190300424

PATIENT
  Sex: Female
  Weight: 63.05 kg

DRUGS (2)
  1. LEVAQUIN [Suspect]
     Active Substance: LEVOFLOXACIN
     Indication: CHOLECYSTITIS
     Route: 042
     Dates: start: 2003, end: 2003
  2. LEVAQUIN [Suspect]
     Active Substance: LEVOFLOXACIN
     Indication: PANCREATITIS
     Route: 042
     Dates: start: 2003, end: 2003

REACTIONS (1)
  - Seizure [Recovered/Resolved]

NARRATIVE: CASE EVENT DATE: 2003
